FAERS Safety Report 5274823-3 (Version None)
Quarter: 2007Q1

REPORT INFORMATION
  Report Type: 
  Country: None (occurrence: None)
  Receive Date: 20061208
  Receipt Date: 20051221
  Transmission Date: 20070707
  Serious: Yes (Hospitalization)
  Sender: FDA-Public Use
  Company Number: 2005UW08347

PATIENT
  Age: 50 Year
  Sex: Female

DRUGS (8)
  1. CRESTOR [Suspect]
     Indication: HYPERLIPIDAEMIA
     Dosage: 20 MG DAILY PO
     Route: 048
     Dates: start: 20030101, end: 20041026
  2. NOVOLIN R [Concomitant]
  3. PROVENTIL-HFA [Concomitant]
  4. KEPPRA [Concomitant]
  5. ULTRAM [Concomitant]
  6. LOPRESSOR [Concomitant]
  7. ALDACTONE [Concomitant]
  8. PLAVIX [Concomitant]

REACTIONS (2)
  - BLOOD CREATINE PHOSPHOKINASE INCREASED [None]
  - PAIN IN EXTREMITY [None]
